FAERS Safety Report 4550479-X (Version None)
Quarter: 2004Q4

REPORT INFORMATION
  Report Type: 
  Country: None (occurrence: None)
  Receive Date: 20041217
  Receipt Date: 20040809
  Transmission Date: 20050328
  Serious: Yes (Hospitalization)
  Sender: FDA-Public Use
  Company Number: 2004-BP-07895BP

PATIENT
  Sex: 0

DRUGS (2)
  1. SPIRIVA [Suspect]
     Dosage: (18 MCG)
  2. ADVAIR (SERETIDE MITE) [Suspect]

REACTIONS (1)
  - URINARY RETENTION [None]
